FAERS Safety Report 10436431 (Version 1)
Quarter: 2014Q3

REPORT INFORMATION
  Report Type: Spontaneous
  Country: US (occurrence: None)
  Receive Date: 20140905
  Receipt Date: 20140905
  Transmission Date: 20150326
  Serious: Yes (Hospitalization)
  Sender: FDA-Public Use
  Company Number: None

PATIENT
  Age: 59 Year
  Sex: Female
  Weight: 87.2 kg

DRUGS (1)
  1. ERBITUX [Suspect]
     Active Substance: CETUXIMAB

REACTIONS (2)
  - Tracheal stenosis [None]
  - Goitre [None]

NARRATIVE: CASE EVENT DATE: 20140827
